FAERS Safety Report 20076815 (Version 1)
Quarter: 2021Q4

REPORT INFORMATION
  Report Type: Spontaneous
  Country: US (occurrence: None)
  Receive Date: 20211115
  Receipt Date: 20211115
  Transmission Date: 20220303
  Serious: Yes (Hospitalization)
  Sender: FDA-Public Use
  Company Number: None

PATIENT
  Age: 22 Year
  Sex: Female

DRUGS (1)
  1. ICATIBANT [Suspect]
     Active Substance: ICATIBANT ACETATE
     Indication: Combined immunodeficiency
     Dosage: OTHER QUANTITY : 30MG/3ML;?FREQUENCY : AS NEEDED;?
     Route: 058
     Dates: start: 2021

REACTIONS (3)
  - Injection site pain [None]
  - Oesophagitis [None]
  - Hereditary angioedema [None]

NARRATIVE: CASE EVENT DATE: 20211110
